FAERS Safety Report 9720551 (Version 1)
Quarter: 2013Q4

REPORT INFORMATION
  Report Type: Spontaneous
  Country: US (occurrence: US)
  Receive Date: 20131129
  Receipt Date: 20131129
  Transmission Date: 20140711
  Serious: No
  Sender: FDA-Public Use
  Company Number: US-009507513-1311USA012693

PATIENT
  Age: 96 Year
  Sex: Female

DRUGS (2)
  1. MIRTAZAPINE [Suspect]
     Indication: DECREASED APPETITE
     Dosage: HALF OF A 15MG, HS
     Route: 048
     Dates: start: 20131113
  2. ATENOLOL [Concomitant]

REACTIONS (2)
  - Dizziness [Unknown]
  - Therapeutic response unexpected [Unknown]
